FAERS Safety Report 17991058 (Version 3)
Quarter: 2020Q3

REPORT INFORMATION
  Report Type: Spontaneous
  Country: ES (occurrence: ES)
  Receive Date: 20200707
  Receipt Date: 20200825
  Transmission Date: 20201103
  Serious: Yes (Life-Threatening, Hospitalization, Other)
  Sender: FDA-Public Use
  Company Number: ES-MYLANLABS-2020M1060663

PATIENT
  Age: 78 Year
  Sex: Male

DRUGS (10)
  1. LOPINAVIR/RITONAVIR [Interacting]
     Active Substance: LOPINAVIR\RITONAVIR
     Indication: COVID-19
     Dosage: UNK UNK, BID
  2. HYDROXYCHLOROQUINE [Concomitant]
     Active Substance: HYDROXYCHLOROQUINE
     Indication: COVID-19 TREATMENT
     Dosage: 400 MILLIGRAM, QD
     Route: 065
  3. HYDROXYCHLOROQUINE [Concomitant]
     Active Substance: HYDROXYCHLOROQUINE
     Indication: COVID-19
     Dosage: 200 MILLIGRAM, BID
  4. MORPHINE [Suspect]
     Active Substance: MORPHINE
     Indication: DYSPNOEA
     Dosage: 3 MILLIGRAM, SINGLE ADMINISTRATION
     Route: 065
  5. INTERFERON BETA 1B [Suspect]
     Active Substance: INTERFERON BETA-1B
     Indication: COVID-19
     Dosage: TWO DOSES ON DAYS 3 AND 4
     Route: 065
  6. OXYGEN. [Concomitant]
     Active Substance: OXYGEN
     Indication: COVID-19
     Dosage: UNK
  7. TOCILIZUMAB. [Suspect]
     Active Substance: TOCILIZUMAB
     Dosage: SINGLE ADMINISTRATION ON DAY 9
     Route: 065
  8. RISPERIDONE. [Interacting]
     Active Substance: RISPERIDONE
     Indication: DELIRIUM
     Dosage: 2 MILLIGRAM, BID(1MG,TWO TIMES)
  9. LOPINAVIR/RITONAVIR [Suspect]
     Active Substance: LOPINAVIR\RITONAVIR
     Indication: COVID-19 TREATMENT
     Dosage: 2 DOSAGE FORM, QD 400MG/100MG
     Route: 048
  10. TOCILIZUMAB. [Suspect]
     Active Substance: TOCILIZUMAB
     Indication: COVID-19
     Dosage: 1 MG, 2X PER DAY
     Route: 048

REACTIONS (13)
  - Myoclonus [Recovered/Resolved]
  - Clonus [Recovered/Resolved]
  - Serotonin syndrome [Recovered/Resolved]
  - Off label use [Recovered/Resolved]
  - Encephalopathy [Recovered/Resolved]
  - Blood creatinine increased [Recovered/Resolved]
  - Cogwheel rigidity [Recovered/Resolved]
  - Tachycardia [Recovered/Resolved]
  - Condition aggravated [Recovered/Resolved]
  - Hyperthermia [Recovered/Resolved]
  - Drug interaction [Recovered/Resolved]
  - Hyperreflexia [Recovered/Resolved]
  - Hyperhidrosis [Recovered/Resolved]
